FAERS Safety Report 8467430 (Version 3)
Quarter: 2012Q4

REPORT INFORMATION
  Report Type: 
  Country: FI (occurrence: FI)
  Receive Date: 20120320
  Receipt Date: 20121002
  Transmission Date: 20130627
  Serious: Yes (Disabling, Other)
  Sender: FDA-Public Use
  Company Number: FI-PFIZER INC-2012054984

PATIENT
  Age: 84 Year
  Sex: Female

DRUGS (3)
  1. XALATAN [Suspect]
     Indication: GLAUCOMA
     Dosage: 1 drop once daily (in the evening) to both eyes
     Route: 047
  2. BISOPROLOL [Concomitant]
     Indication: HYPERTENSION
     Dosage: 5 mg, UNK
  3. FELODIPINE [Concomitant]
     Indication: HYPERTENSION
     Dosage: 5 mg, UNK

REACTIONS (6)
  - Visual impairment [Not Recovered/Not Resolved]
  - Malaise [Not Recovered/Not Resolved]
  - Feeling abnormal [Not Recovered/Not Resolved]
  - Dizziness [Not Recovered/Not Resolved]
  - Headache [Not Recovered/Not Resolved]
  - Product quality issue [Unknown]
